FAERS Safety Report 11434506 (Version 2)
Quarter: 2015Q4

REPORT INFORMATION
  Report Type: Spontaneous
  Country: FI (occurrence: FI)
  Receive Date: 20150831
  Receipt Date: 20151008
  Transmission Date: 20160304
  Serious: Yes (Other)
  Sender: FDA-Public Use
  Company Number: FI-JNJFOC-20150815846

PATIENT
  Age: 56 Year
  Sex: Female

DRUGS (4)
  1. SIMPONI [Suspect]
     Active Substance: GOLIMUMAB
     Indication: RHEUMATOID ARTHRITIS
     Route: 058
     Dates: start: 20150610, end: 2015
  2. EMCONCOR [Concomitant]
     Active Substance: BISOPROLOL FUMARATE
     Route: 065
  3. MULTAQ [Concomitant]
     Active Substance: DRONEDARONE
     Route: 065
     Dates: end: 2015
  4. TAMBOCOR [Concomitant]
     Active Substance: FLECAINIDE ACETATE
     Route: 065
     Dates: start: 2015

REACTIONS (8)
  - Arrhythmia [Not Recovered/Not Resolved]
  - Blood pressure decreased [Recovering/Resolving]
  - Gait disturbance [Not Recovered/Not Resolved]
  - Heart rate decreased [Recovering/Resolving]
  - Syncope [Recovered/Resolved with Sequelae]
  - Pyrexia [Recovered/Resolved with Sequelae]
  - Insomnia [Unknown]
  - Respiratory tract infection [Recovered/Resolved with Sequelae]

NARRATIVE: CASE EVENT DATE: 2015
